FAERS Safety Report 17325906 (Version 5)
Quarter: 2023Q1

REPORT INFORMATION
  Report Type: Spontaneous
  Country: US (occurrence: US)
  Receive Date: 20200127
  Receipt Date: 20230208
  Transmission Date: 20230418
  Serious: No
  Sender: FDA-Public Use
  Company Number: US-PFIZER INC-2020032899

PATIENT
  Age: 89 Year
  Sex: Female
  Weight: 65.76 kg

DRUGS (1)
  1. ESTRING [Suspect]
     Active Substance: ESTRADIOL
     Indication: Prolapse
     Dosage: UNK

REACTIONS (4)
  - Illness [Not Recovered/Not Resolved]
  - Confusional state [Unknown]
  - Negative thoughts [Unknown]
  - Gait disturbance [Unknown]
